FAERS Safety Report 7092693-8 (Version None)
Quarter: 2010Q4

REPORT INFORMATION
  Report Type: 
  Country: None (occurrence: None)
  Receive Date: 20101108
  Receipt Date: 20101108
  Transmission Date: 20110411
  Serious: No
  Sender: FDA-Public Use
  Company Number: None

PATIENT
  Age: 36 Year
  Sex: Female
  Weight: 63.5036 kg

DRUGS (2)
  1. LEVAQUIN [Suspect]
     Indication: CYSTITIS
     Dosage: 3X/DAY PO
     Route: 048
     Dates: start: 20070330, end: 20070630
  2. LEVAQUIN [Suspect]
     Indication: URINARY TRACT INFECTION
     Dosage: 3X/DAY PO
     Route: 048
     Dates: start: 20070330, end: 20070630

REACTIONS (9)
  - BACK PAIN [None]
  - CHRONIC FATIGUE SYNDROME [None]
  - CYSTITIS INTERSTITIAL [None]
  - FIBROMYALGIA [None]
  - MIGRAINE [None]
  - MUSCLE TWITCHING [None]
  - NEURALGIA [None]
  - PAIN IN EXTREMITY [None]
  - PELVIC PAIN [None]
